FAERS Safety Report 9886605 (Version 2)
Quarter: 2014Q1

REPORT INFORMATION
  Report Type: Spontaneous
  Country: FR (occurrence: FR)
  Receive Date: 20140210
  Receipt Date: 20140227
  Transmission Date: 20141002
  Serious: Yes (Life-Threatening, Hospitalization, Disabling, Other)
  Sender: FDA-Public Use
  Company Number: FR-INCYTE CORPORATION-2014IN000290

PATIENT
  Age: 64 Year
  Sex: Male

DRUGS (12)
  1. JAKAVI [Suspect]
     Indication: ESSENTIAL THROMBOCYTHAEMIA
     Dosage: 15 MG, QD
     Route: 048
     Dates: start: 20131202
  2. JAKAVI [Suspect]
     Indication: ANAEMIA
     Dosage: 4 MG, BID
     Route: 048
  3. ERYTHROPOETIN [Concomitant]
  4. LAXATIVE [Concomitant]
  5. ANTIDEPRESSANTS [Concomitant]
  6. ALPRAZOLAM [Concomitant]
  7. ZELITREX [Concomitant]
  8. METHADONE [Concomitant]
     Dosage: UNK
     Dates: start: 20131203
  9. LAROXYL [Concomitant]
  10. DOLIPRANE [Concomitant]
  11. COLCHICINE [Concomitant]
  12. MOVICOL                            /01625101/ [Concomitant]

REACTIONS (6)
  - Oedema peripheral [Not Recovered/Not Resolved]
  - Dyspnoea [Not Recovered/Not Resolved]
  - Cardiac failure [Unknown]
  - Acute pulmonary oedema [Unknown]
  - Congestive cardiomyopathy [Unknown]
  - Ejection fraction decreased [Unknown]
